FAERS Safety Report 5116802-2 (Version None)
Quarter: 2006Q3

REPORT INFORMATION
  Report Type: 
  Country: None (occurrence: None)
  Receive Date: 20060925
  Receipt Date: 20060911
  Transmission Date: 20061208
  Serious: Yes (Hospitalization, Other)
  Sender: FDA-Public Use
  Company Number: 2006111830

PATIENT
  Sex: Male

DRUGS (11)
  1. NEURONTIN [Suspect]
     Indication: NEUROPATHY
     Dates: start: 20050101, end: 20050101
  2. LYRICA [Suspect]
     Indication: NEUROPATHY
     Dates: start: 20050101
  3. OXYCONTIN [Suspect]
     Indication: FIBROMYALGIA
     Dosage: 90 MG (30 MG, 3 IN 1 D);
  4. TOPROL-XL [Concomitant]
  5. GLIPIZIDE [Concomitant]
  6. PLAVIX [Concomitant]
  7. VASOTEC [Concomitant]
  8. LIPITOR [Concomitant]
  9. LASIX [Concomitant]
  10. NITRO PATCH (GLYCERYL TRINITRATE) [Concomitant]
  11. ZAROXOLYN [Concomitant]

REACTIONS (10)
  - CARDIAC FAILURE [None]
  - CONDITION AGGRAVATED [None]
  - DRUG INTOLERANCE [None]
  - DYSKINESIA [None]
  - FLUID RETENTION [None]
  - INCORRECT DOSE ADMINISTERED [None]
  - MYALGIA [None]
  - RENAL FAILURE [None]
  - SWELLING [None]
  - WEIGHT FLUCTUATION [None]
